FAERS Safety Report 18520722 (Version 3)
Quarter: 2020Q4

REPORT INFORMATION
  Report Type: Spontaneous
  Country: US (occurrence: US)
  Receive Date: 20201119
  Receipt Date: 20201203
  Transmission Date: 20210114
  Serious: Yes (Hospitalization, Other)
  Sender: FDA-Public Use
  Company Number: US-UNITED THERAPEUTICS-UNT-2020-017872

PATIENT
  Age: 61 Year
  Sex: Female
  Weight: 59.41 kg

DRUGS (5)
  1. OPSUMIT [Concomitant]
     Active Substance: MACITENTAN
     Indication: PRODUCT USED FOR UNKNOWN INDICATION
     Dosage: UNK
     Route: 065
  2. REMODULIN [Suspect]
     Active Substance: TREPROSTINIL
     Indication: PULMONARY ARTERIAL HYPERTENSION
     Dosage: UNK, CONTINUING
     Route: 058
     Dates: start: 20180521
  3. ADCIRCA [Concomitant]
     Active Substance: TADALAFIL
     Indication: PULMONARY ARTERIAL HYPERTENSION
     Dosage: UNK
     Route: 065
  4. REMODULIN [Suspect]
     Active Substance: TREPROSTINIL
     Dosage: 0.121 ?G/KG, CONTINUING
     Route: 058
  5. REMODULIN [Suspect]
     Active Substance: TREPROSTINIL
     Dosage: 0.095 ?G/KG, CONTINUING
     Route: 058

REACTIONS (8)
  - Diarrhoea [Unknown]
  - Incorrect dose administered by device [Recovered/Resolved]
  - Extra dose administered [Recovered/Resolved]
  - Chest pain [Unknown]
  - Left ventricular failure [Unknown]
  - Device infusion issue [Recovered/Resolved]
  - Clostridium difficile infection [Recovering/Resolving]
  - Asthenia [Recovering/Resolving]

NARRATIVE: CASE EVENT DATE: 202011
